FAERS Safety Report 7470145-0 (Version None)
Quarter: 2011Q2

REPORT INFORMATION
  Report Type: 
  Country: None (occurrence: None)
  Receive Date: 20110510
  Receipt Date: 20110504
  Transmission Date: 20111010
  Serious: Yes (Death)
  Sender: FDA-Public Use
  Company Number: A0926633A

PATIENT
  Age: 49 Year
  Sex: Male

DRUGS (7)
  1. VOTRIENT [Suspect]
     Dosage: 800MG PER DAY
     Route: 048
     Dates: start: 20110330, end: 20110101
  2. LORAZEPAM [Concomitant]
  3. LORTAB [Concomitant]
  4. PROMETHAZINE [Concomitant]
  5. MORPHINE [Concomitant]
  6. IBUPROFEN [Concomitant]
  7. STOOL SOFTENER [Concomitant]

REACTIONS (1)
  - DEATH [None]
